FAERS Safety Report 5064536-5 (Version None)
Quarter: 2006Q3

REPORT INFORMATION
  Report Type: 
  Country: None (occurrence: None)
  Receive Date: 20060728
  Receipt Date: 20060718
  Transmission Date: 20061208
  Serious: Yes (Hospitalization)
  Sender: FDA-Public Use
  Company Number: US-ABBOTT-06P-163-0338362-00

PATIENT

DRUGS (3)
  1. BIAXIN XL [Suspect]
     Indication: NASOPHARYNGITIS
     Dates: start: 20060306
  2. BIAXIN XL [Suspect]
     Indication: PYREXIA
  3. CIPROFLOXACIN [Concomitant]
     Indication: DRUG USE FOR UNKNOWN INDICATION
     Dates: start: 20060309

REACTIONS (1)
  - GASTRIC ULCER [None]
